FAERS Safety Report 12933244 (Version 1)
Quarter: 2016Q4

REPORT INFORMATION
  Report Type: Spontaneous
  Country: US (occurrence: US)
  Receive Date: 20161111
  Receipt Date: 20161111
  Transmission Date: 20170207
  Serious: No
  Sender: FDA-Public Use
  Company Number: US-B.I. PHARMACEUTICALS,INC./RIDGEFIELD-2016-BI-072749

PATIENT
  Sex: Female
  Weight: 43.09 kg

DRUGS (3)
  1. SPIRIVA [Suspect]
     Active Substance: TIOTROPIUM BROMIDE MONOHYDRATE
     Indication: ASTHMA
     Dosage: SUPPOSED TO TAKE IT ONCE A DAY, BUT SHE DID NOT TAKE EVERY DAY.
     Route: 065
  2. ADVAIR HFA [Concomitant]
     Active Substance: FLUTICASONE PROPIONATE\SALMETEROL XINAFOATE
     Indication: ASTHMA
     Dosage: SUPPOSED TO USE IT TWICE A DAY, BUT SHE DID NOT USED IT TWICE. SOMETIME SHE USED IT ONCE
     Route: 065
  3. VFEND [Concomitant]
     Active Substance: VORICONAZOLE
     Indication: LUNG INFECTION
     Route: 048
     Dates: start: 2016, end: 2016

REACTIONS (1)
  - Alopecia [Not Recovered/Not Resolved]

NARRATIVE: CASE EVENT DATE: 2016
